FAERS Safety Report 8505015-X (Version None)
Quarter: 2012Q3

REPORT INFORMATION
  Report Type: 
  Country: None (occurrence: None)
  Receive Date: 20120702
  Receipt Date: 20120615
  Transmission Date: 20120928
  Serious: Yes (Other)
  Sender: FDA-Public Use
  Company Number: JPI-P-022046

PATIENT
  Age: 55 Year
  Sex: Female
  Weight: 127.0072 kg

DRUGS (12)
  1. METFORMIN HYDROCHLORIDE [Concomitant]
  2. SIMVASTATIN [Concomitant]
  3. FENOFIBRATE [Concomitant]
  4. LEVOTHYROXINE SODIUM [Concomitant]
  5. ZOLPIDEM [Concomitant]
  6. INSULIN [Concomitant]
  7. CREAMS [Concomitant]
  8. ATENOLOL [Concomitant]
  9. XYREM [Suspect]
     Indication: FIBROMYALGIA
     Dosage: 4.5 GM (2.25 GM,2 IN 1 D),ORAL ; (UNSPECIFIED DOSE CHANGE),ORAL ; 9 GM (4.5 GM,2 IN 1 D),ORAL
     Route: 048
     Dates: start: 20030418
  10. XYREM [Suspect]
     Indication: FIBROMYALGIA
     Dosage: 4.5 GM (2.25 GM,2 IN 1 D),ORAL ; (UNSPECIFIED DOSE CHANGE),ORAL ; 9 GM (4.5 GM,2 IN 1 D),ORAL
     Route: 048
     Dates: start: 20030506
  11. LISINOPRIL [Concomitant]
  12. OMEPRAZOLE [Concomitant]

REACTIONS (17)
  - CONVULSION [None]
  - SPINAL OSTEOARTHRITIS [None]
  - MIGRAINE [None]
  - MYALGIA [None]
  - OEDEMA PERIPHERAL [None]
  - PAIN IN EXTREMITY [None]
  - CONDITION AGGRAVATED [None]
  - FALL [None]
  - POOR QUALITY SLEEP [None]
  - INTERVERTEBRAL DISC PROTRUSION [None]
  - AMNESIA [None]
  - SLEEP APNOEA SYNDROME [None]
  - FIBROMYALGIA [None]
  - ANKLE FRACTURE [None]
  - PERIORBITAL HAEMATOMA [None]
  - WEIGHT INCREASED [None]
  - HYPOAESTHESIA [None]
